FAERS Safety Report 15499678 (Version 4)
Quarter: 2018Q4

REPORT INFORMATION
  Report Type: Report from Study
  Country: JP (occurrence: JP)
  Receive Date: 20181015
  Receipt Date: 20181112
  Transmission Date: 20190205
  Serious: Yes (Hospitalization)
  Sender: FDA-Public Use
  Company Number: PHJP2018JP017455

PATIENT
  Age: 77 Year
  Sex: Male
  Weight: 69.4 kg

DRUGS (19)
  1. REBAMIPIDE [Concomitant]
     Active Substance: REBAMIPIDE
     Indication: SPINAL OSTEOARTHRITIS
     Dosage: 100 MG, TID
     Route: 048
     Dates: start: 20181001
  2. BAYASPIRIN [Suspect]
     Active Substance: ASPIRIN
     Dosage: 100 MG, QD
     Route: 048
     Dates: start: 20181011
  3. TAMSULOSIN HYDROCHLORIDE. [Concomitant]
     Active Substance: TAMSULOSIN HYDROCHLORIDE
     Indication: BENIGN PROSTATIC HYPERPLASIA
     Dosage: 0.2 MG, QD
     Route: 048
     Dates: start: 20170331
  4. AVOLVE [Concomitant]
     Active Substance: DUTASTERIDE
     Indication: BENIGN PROSTATIC HYPERPLASIA
     Dosage: 0.5 MG, UNK
     Route: 048
     Dates: start: 20160315
  5. NEXIUM [Concomitant]
     Active Substance: ESOMEPRAZOLE MAGNESIUM
     Indication: PROPHYLAXIS AGAINST GASTROINTESTINAL ULCER
     Dosage: 20 MG, QD
     Route: 048
     Dates: start: 20170421
  6. MAGNESIUM OXIDE. [Concomitant]
     Active Substance: MAGNESIUM OXIDE
     Indication: CONSTIPATION
     Dosage: 0.6 G, QD
     Route: 048
     Dates: start: 20160420
  7. PANTETHINE [Concomitant]
     Active Substance: PANTETHINE
     Indication: CONSTIPATION
     Dosage: 1 G, QD
     Route: 048
     Dates: start: 20160208
  8. DEXTROMETHORPHAN HYDROBROMIDE. [Concomitant]
     Active Substance: DEXTROMETHORPHAN HYDROBROMIDE
     Indication: UPPER RESPIRATORY TRACT INFLAMMATION
     Dosage: 0.6 G, QID
     Route: 048
     Dates: start: 20181003, end: 20181008
  9. ACZ885 [Suspect]
     Active Substance: CANAKINUMAB
     Indication: CARDIOVASCULAR EVENT PROPHYLAXIS
     Dosage: 150 MG, Q3MO
     Route: 058
     Dates: start: 20171012, end: 20180719
  10. PLACEBO [Suspect]
     Active Substance: UNSPECIFIED INGREDIENT
     Indication: CARDIOVASCULAR EVENT PROPHYLAXIS
     Dosage: UNK
     Route: 058
  11. ZETIA [Concomitant]
     Active Substance: EZETIMIBE
     Indication: LIPID METABOLISM DISORDER
     Dosage: 10 MG, QD
     Route: 048
     Dates: start: 20150225
  12. CARVEDILOL. [Concomitant]
     Active Substance: CARVEDILOL
     Indication: HYPERTENSION
     Dosage: 10 MG, QD
     Route: 048
     Dates: start: 20140805
  13. BAYASPIRIN [Suspect]
     Active Substance: ASPIRIN
     Indication: THROMBOSIS PROPHYLAXIS
     Dosage: 100 MG, QD
     Route: 048
     Dates: start: 20070918
  14. LOSARTAN K [Concomitant]
     Active Substance: LOSARTAN POTASSIUM
     Indication: HYPERTENSION
     Dosage: 50 MG, QD
     Route: 048
     Dates: start: 20140804
  15. NICORANDIL [Concomitant]
     Active Substance: NICORANDIL
     Indication: CARDIOVASCULAR EVENT PROPHYLAXIS
     Dosage: 5 MG, TID
     Route: 048
     Dates: start: 20140804
  16. FEXOFENADINE HYDROCHLORIDE. [Concomitant]
     Active Substance: FEXOFENADINE HYDROCHLORIDE
     Indication: UPPER RESPIRATORY TRACT INFLAMMATION
     Dosage: 60 MG, BID
     Route: 048
     Dates: start: 20181003, end: 20181008
  17. LOXOPROFEN NA [Concomitant]
     Active Substance: LOXOPROFEN SODIUM
     Indication: SPINAL OSTEOARTHRITIS
     Dosage: 60 MG, TID
     Route: 048
     Dates: start: 20181001
  18. ROSUVASTATIN. [Concomitant]
     Active Substance: ROSUVASTATIN
     Indication: LIPID METABOLISM DISORDER
     Dosage: 2.5 MG, QD
     Route: 048
     Dates: start: 20150519
  19. POLAPREZINC [Concomitant]
     Active Substance: POLAPREZINC
     Indication: CHRONIC GASTRITIS
     Dosage: 75 MG, BID
     Route: 048
     Dates: start: 20140804

REACTIONS (2)
  - Haemoptysis [Recovered/Resolved]
  - Pneumonia [Recovered/Resolved]

NARRATIVE: CASE EVENT DATE: 20181008
